FAERS Safety Report 22183995 (Version 2)
Quarter: 2023Q2

REPORT INFORMATION
  Report Type: Report from Study
  Country: US (occurrence: US)
  Receive Date: 20230407
  Receipt Date: 20230411
  Transmission Date: 20230722
  Serious: No
  Sender: FDA-Public Use
  Company Number: US-002147023-NVSC2023US080349

PATIENT
  Sex: Male

DRUGS (2)
  1. CLOBETASOL [Suspect]
     Active Substance: CLOBETASOL
     Indication: Psoriasis
     Dosage: UNK
     Route: 065
  2. BETAMETHASONE [Suspect]
     Active Substance: BETAMETHASONE
     Indication: Psoriasis
     Dosage: UNK
     Route: 065

REACTIONS (7)
  - Lentigo [Unknown]
  - Melanocytic naevus [Unknown]
  - Papule [Unknown]
  - Seborrhoeic keratosis [Unknown]
  - Cyst [Unknown]
  - Psoriasis [Unknown]
  - Drug ineffective [Unknown]
